FAERS Safety Report 7437106-9 (Version None)
Quarter: 2011Q2

REPORT INFORMATION
  Report Type: 
  Country: None (occurrence: None)
  Receive Date: 20110426
  Receipt Date: 20110418
  Transmission Date: 20111010
  Serious: Yes (Death, Hospitalization)
  Sender: FDA-Public Use
  Company Number: US-SANOFI-AVENTIS-2011SA024076

PATIENT
  Sex: Male

DRUGS (1)
  1. JEVTANA KIT [Suspect]
     Route: 041
     Dates: start: 20100101, end: 20100101

REACTIONS (5)
  - BONE MARROW FAILURE [None]
  - FAILURE TO THRIVE [None]
  - DEATH [None]
  - NEUTROPENIA [None]
  - SEPSIS [None]
